FAERS Safety Report 12506802 (Version 1)
Quarter: 2016Q2

REPORT INFORMATION
  Report Type: Spontaneous
  Country: US (occurrence: US)
  Receive Date: 20160628
  Receipt Date: 20160628
  Transmission Date: 20160815
  Serious: Yes (Other)
  Sender: FDA-Public Use
  Company Number: US-BRISTOL-MYERS SQUIBB COMPANY-BMS-2016-049637

PATIENT
  Sex: Female

DRUGS (1)
  1. KENALOG [Suspect]
     Active Substance: TRIAMCINOLONE ACETONIDE
     Indication: PAIN MANAGEMENT
     Route: 008

REACTIONS (3)
  - Spinal cord infarction [Unknown]
  - Product use issue [Unknown]
  - Post procedural stroke [Unknown]

NARRATIVE: CASE EVENT DATE: 20140729
